FAERS Safety Report 9298829 (Version 1)
Quarter: 2013Q1

REPORT INFORMATION
  Report Type: Spontaneous
  Country: US (occurrence: US)
  Receive Date: 20121227
  Receipt Date: 20121227
  Transmission Date: 20140127
  Serious: Yes (Death, Other)
  Sender: FDA-Public Use
  Company Number: PHEH2012US017210

PATIENT
  Age: 60 Year
  Sex: Female
  Weight: 134 kg

DRUGS (12)
  1. AFINITOR [Suspect]
     Indication: BREAST CANCER
     Route: 048
  2. AROMASIN (EXZEMESTANE) [Concomitant]
  3. TAMOXIFEN [Concomitant]
  4. FASLODEX (FULVESTRANT) [Concomitant]
  5. XELODA (CAPECITABINE) [Concomitant]
  6. GEMZAR (GEMCITABINE HYDROCHLORIDE) [Concomitant]
  7. NAVELBINE (VINORELBINE DITARTRATE) [Concomitant]
  8. TAXOL (PACLITAXEL) [Concomitant]
  9. DOXIL (DOXORUBICIN HYDROCHLORIDE) [Concomitant]
  10. CYTOXAN (CYCLOPHOSPHAMIDE) [Concomitant]
  11. CARBOPLATIN (CARBOPLATIN) [Concomitant]
  12. CYCLOPHOSPHAMIDE (CYCLOPHOSPHAMIDE) [Concomitant]

REACTIONS (21)
  - Neoplasm [None]
  - Pneumonitis [None]
  - Upper respiratory tract infection [None]
  - Sciatica [None]
  - Mass [None]
  - Skin lesion [None]
  - Blood chloride decreased [None]
  - White blood cell count increased [None]
  - Blood albumin decreased [None]
  - Protein total decreased [None]
  - Blood calcium decreased [None]
  - Blood alkaline phosphatase increased [None]
  - Musculoskeletal chest pain [None]
  - Fatigue [None]
  - Haemoglobin decreased [None]
  - Aspartate aminotransferase increased [None]
  - Alanine aminotransferase increased [None]
  - Blood glucose increased [None]
  - Malignant neoplasm progression [None]
  - Dyspnoea [None]
  - Pain [None]
